FAERS Safety Report 11137222 (Version 1)
Quarter: 2015Q2

REPORT INFORMATION
  Report Type: Report from Study
  Country: US (occurrence: US)
  Receive Date: 20150526
  Receipt Date: 20150526
  Transmission Date: 20150821
  Serious: Yes (Other)
  Sender: FDA-Public Use
  Company Number: US-ASTELLAS-2015US016881

PATIENT
  Sex: Female

DRUGS (1)
  1. ERLOTINIB [Suspect]
     Active Substance: ERLOTINIB
     Indication: ANAPLASTIC THYROID CANCER
     Route: 065

REACTIONS (4)
  - Neoplasm progression [Unknown]
  - Rash [Unknown]
  - Malaise [Unknown]
  - Product use issue [Unknown]
